FAERS Safety Report 20822576 (Version 1)
Quarter: 2022Q2

REPORT INFORMATION
  Report Type: Spontaneous
  Country: FR (occurrence: FR)
  Receive Date: 20220512
  Receipt Date: 20220512
  Transmission Date: 20220720
  Serious: Yes (Hospitalization, Other)
  Sender: FDA-Public Use
  Company Number: None

PATIENT
  Age: 59 Year
  Sex: Female

DRUGS (2)
  1. OXYCONTIN [Suspect]
     Active Substance: OXYCODONE HYDROCHLORIDE
     Indication: Product used for unknown indication
     Dosage: UNK (25MG 2 FOIS /J)
     Route: 048
     Dates: start: 201001, end: 20220201
  2. OXYCONTIN [Suspect]
     Active Substance: OXYCODONE HYDROCHLORIDE
     Dosage: UNK (40MG 2 FOIS/J)
     Route: 048
     Dates: start: 202203

REACTIONS (9)
  - Fall [Recovered/Resolved with Sequelae]
  - Pain [Recovering/Resolving]
  - Dependence [Not Recovered/Not Resolved]
  - Contusion [Recovering/Resolving]
  - Tremor [Recovered/Resolved]
  - Agitation [Recovered/Resolved]
  - Hallucination [Recovered/Resolved]
  - Withdrawal syndrome [Recovered/Resolved]
  - Hyperhidrosis [Recovered/Resolved]

NARRATIVE: CASE EVENT DATE: 20100101
